FAERS Safety Report 9159397 (Version 2)
Quarter: 2013Q1

REPORT INFORMATION
  Report Type: Spontaneous
  Country: BR (occurrence: None)
  Receive Date: 20130212
  Receipt Date: 20130319
  Transmission Date: 20140127
  Serious: Yes (Other)
  Sender: FDA-Public Use
  Company Number: ENT 2013-0028

PATIENT
  Sex: Male

DRUGS (1)
  1. COMTAN [Suspect]
     Route: 048

REACTIONS (4)
  - Wrong technique in drug usage process [None]
  - Incorrect dose administered [None]
  - Treatment noncompliance [None]
  - Hallucination [None]
